FAERS Safety Report 6339023-4 (Version None)
Quarter: 2009Q3

REPORT INFORMATION
  Report Type: 
  Country: None (occurrence: None)
  Receive Date: 20090903
  Receipt Date: 20090804
  Transmission Date: 20100115
  Serious: No
  Sender: FDA-Public Use
  Company Number: US-BAYER-200913117BCC

PATIENT
  Sex: Female

DRUGS (3)
  1. ALEVE (CAPLET) [Suspect]
     Indication: BACK PAIN
     Dosage: TOTAL DAILY DOSE: 330 MG  UNIT DOSE: 220 MG
     Route: 048
     Dates: start: 20090727, end: 20090731
  2. INDERAL [Concomitant]
     Route: 065
  3. BAYER WOMENS [Concomitant]
     Route: 065

REACTIONS (2)
  - JOINT SWELLING [None]
  - OEDEMA PERIPHERAL [None]
